FAERS Safety Report 9910647 (Version 1)
Quarter: 2014Q1

REPORT INFORMATION
  Report Type: Spontaneous
  Country: US (occurrence: US)
  Receive Date: 20140219
  Receipt Date: 20140219
  Transmission Date: 20141002
  Serious: No
  Sender: FDA-Public Use
  Company Number: US-GILEAD-2012-0053423

PATIENT
  Age: 45 Year
  Sex: Female

DRUGS (3)
  1. LETAIRIS [Suspect]
     Indication: PRODUCT USED FOR UNKNOWN INDICATION
     Dosage: 10 MG, UNK
     Route: 048
     Dates: start: 20090417
  2. EPOPROSTENOL [Concomitant]
  3. REVATIO [Concomitant]

REACTIONS (5)
  - Eye pruritus [Unknown]
  - Erythema [Unknown]
  - Diarrhoea [Unknown]
  - Periorbital oedema [Unknown]
  - Headache [Unknown]
